FAERS Safety Report 7359141-1 (Version None)
Quarter: 2011Q1

REPORT INFORMATION
  Report Type: 
  Country: None (occurrence: None)
  Receive Date: 20110317
  Receipt Date: 20110308
  Transmission Date: 20110831
  Serious: Yes (Hospitalization)
  Sender: FDA-Public Use
  Company Number: US-ASTRAZENECA-2011SE12993

PATIENT
  Age: 59 Year
  Sex: Male

DRUGS (5)
  1. SYNTHROID [Concomitant]
  2. NEXIUM [Suspect]
     Indication: GASTROOESOPHAGEAL REFLUX DISEASE
     Route: 048
     Dates: start: 20040101
  3. PLAVIX [Concomitant]
  4. ALLOPURINOL [Concomitant]
  5. FLOMAX [Concomitant]

REACTIONS (2)
  - CARDIAC OPERATION [None]
  - VASCULAR GRAFT [None]
